FAERS Safety Report 5144919-5 (Version None)
Quarter: 2006Q4

REPORT INFORMATION
  Report Type: 
  Country: None (occurrence: None)
  Receive Date: 20061107
  Receipt Date: 20061024
  Transmission Date: 20070319
  Serious: Yes (Death, Other)
  Sender: FDA-Public Use
  Company Number: PHBS2006AU16734

PATIENT
  Age: 3 Year
  Sex: Male

DRUGS (24)
  1. FUROSEMIDE [Concomitant]
  2. ACETAMINOPHEN [Concomitant]
  3. G-CSF [Concomitant]
  4. ONDANSETRON [Concomitant]
  5. LISINOPRIL [Concomitant]
  6. LOPERAMIDE [Concomitant]
  7. RANITIDINE [Concomitant]
  8. AMIKACIN [Concomitant]
  9. FLUCONAZOLE [Concomitant]
  10. GENTAMICIN [Concomitant]
  11. MEROPENEM [Concomitant]
  12. MYCOPHENOLATE MOFETIL [Concomitant]
     Dosage: 250 MG/M2/DAY
  13. TICARCILLIN/CLAVULANATE POTASSIUM [Concomitant]
  14. VALACYCLOVIR HCL [Concomitant]
  15. VANCOMYCIN [Concomitant]
  16. CYCLOSPORINE [Suspect]
     Indication: BONE MARROW TRANSPLANT
  17. MELPHALAN [Concomitant]
     Dosage: 140 MG/M2, ONCE/SINGLE
  18. ANTITHYMOCYTE IMMUNOGLOBULIN [Concomitant]
     Dosage: 30 MG/KG, ONCE/SINGLE
  19. ANTITHYMOCYTE IMMUNOGLOBULIN [Concomitant]
     Dosage: 30 MG/KG, ONCE/SINGLE
  20. ANTITHYMOCYTE IMMUNOGLOBULIN [Concomitant]
     Dosage: 30 MG/KG, ONCE/SINGLE
  21. IRRADIATION [Concomitant]
  22. PREDNISOLONE [Concomitant]
     Dosage: 0.3 MG/KG/DAY
  23. PREDNISOLONE [Concomitant]
     Dosage: 2 MG/KG/DAY
  24. SULFAMETHOXAZOLE + TRIMETHOPRIM [Concomitant]

REACTIONS (12)
  - ABDOMINAL PAIN [None]
  - BACTERIAL INFECTION [None]
  - BLOOD AMYLASE INCREASED [None]
  - DIARRHOEA [None]
  - GASTROENTERITIS ADENOVIRUS [None]
  - GRAFT VERSUS HOST DISEASE [None]
  - INFECTION [None]
  - LIPASE INCREASED [None]
  - LYMPHOPENIA [None]
  - PANCREATITIS ACUTE [None]
  - T-LYMPHOCYTE COUNT DECREASED [None]
  - VOMITING [None]
